FAERS Safety Report 12944158 (Version 1)
Quarter: 2016Q4

REPORT INFORMATION
  Report Type: Spontaneous
  Country: US (occurrence: US)
  Receive Date: 20161115
  Receipt Date: 20161115
  Transmission Date: 20170207
  Serious: No
  Sender: FDA-Public Use
  Company Number: US-ROCHE-1720365

PATIENT
  Sex: Female

DRUGS (6)
  1. FOLIC ACID. [Concomitant]
     Active Substance: FOLIC ACID
  2. PIOGLITAZONE HCL [Concomitant]
     Active Substance: PIOGLITAZONE
  3. GABAPENTIN. [Concomitant]
     Active Substance: GABAPENTIN
  4. HERCEPTIN [Suspect]
     Active Substance: TRASTUZUMAB
     Indication: BREAST CANCER FEMALE
     Dosage: EVERY MORNING (QM (QUAQUE MANE))
     Route: 048
     Dates: start: 20160212
  5. TRADJENTA [Concomitant]
     Active Substance: LINAGLIPTIN
  6. LETROZOLE. [Concomitant]
     Active Substance: LETROZOLE

REACTIONS (3)
  - Asthenia [Not Recovered/Not Resolved]
  - Off label use [Unknown]
  - Immunodeficiency [Not Recovered/Not Resolved]
